FAERS Safety Report 9471108 (Version 2)
Quarter: 2013Q4

REPORT INFORMATION
  Report Type: Spontaneous
  Country: US (occurrence: US)
  Receive Date: 20130822
  Receipt Date: 20131015
  Transmission Date: 20140711
  Serious: Yes (Hospitalization, Other)
  Sender: FDA-Public Use
  Company Number: US-GILEAD-2013-0081803

PATIENT
  Age: 51 Year
  Sex: Female

DRUGS (2)
  1. LETAIRIS [Suspect]
     Indication: PRODUCT USED FOR UNKNOWN INDICATION
     Dosage: 10 MG, UNK
     Dates: start: 20110720
  2. REMODULIN [Concomitant]

REACTIONS (4)
  - Sepsis [Unknown]
  - Food poisoning [Unknown]
  - Device related infection [Unknown]
  - Sepsis [Not Recovered/Not Resolved]
